FAERS Safety Report 8277619-3 (Version None)
Quarter: 2012Q2

REPORT INFORMATION
  Report Type: 
  Country: None (occurrence: None)
  Receive Date: 20120412
  Receipt Date: 20120403
  Transmission Date: 20120825
  Serious: Yes (Hospitalization)
  Sender: FDA-Public Use
  Company Number: FR-BRISTOL-MYERS SQUIBB COMPANY-16501595

PATIENT
  Age: 52 Year
  Sex: Male
  Weight: 60 kg

DRUGS (8)
  1. NECITUMUMAB [Suspect]
     Indication: NON-SMALL CELL LUNG CANCER
     Route: 042
     Dates: start: 20101018
  2. MORPHINE SULFATE [Concomitant]
  3. ATROVENT [Concomitant]
  4. BRICANYL [Concomitant]
  5. MORPHINE SULFATE [Concomitant]
  6. ALPRAZOLAM [Concomitant]
  7. PEMETREXED DISODIUM [Suspect]
     Indication: NON-SMALL CELL LUNG CANCER
     Dosage: VIAL;RECENT DOSE ON 10-NOV-2010 (3RD INFUSION).
     Route: 042
     Dates: start: 20101018
  8. CISPLATIN [Suspect]
     Indication: NON-SMALL CELL LUNG CANCER
     Dosage: RECENT DOSE ON 10-NOV-2010 (2ND INFUSION).
     Dates: start: 20101018

REACTIONS (3)
  - EPISTAXIS [None]
  - DYSPNOEA [None]
  - SINUS TACHYCARDIA [None]
